FAERS Safety Report 8027432-7 (Version None)
Quarter: 2012Q1

REPORT INFORMATION
  Report Type: 
  Country: None (occurrence: None)
  Receive Date: 20120106
  Receipt Date: 20111221
  Transmission Date: 20120608
  Serious: Yes (Hospitalization)
  Sender: FDA-Public Use
  Company Number: CZ-AMGEN-CZESP2011063352

PATIENT
  Age: 63 Year
  Sex: Female

DRUGS (11)
  1. ARANESP [Suspect]
     Indication: ANAEMIA OF CHRONIC DISEASE
     Dosage: 30 MUG, QWK
     Route: 058
     Dates: start: 20110317, end: 20111103
  2. SORBIFER [Concomitant]
     Dosage: UNK UNK, BID
     Route: 048
  3. NITROFURANTOIN [Concomitant]
     Dosage: UNK UNK, QD
     Route: 048
  4. PREDNISONE TAB [Concomitant]
     Dosage: 5 MG, UNK
     Route: 048
  5. NEORAL [Concomitant]
     Dosage: 50 MG, BID
     Route: 048
  6. FUROSEMIDE [Concomitant]
     Dosage: 20 MG, QD
     Route: 048
  7. PYRIDOXIN [Concomitant]
     Dosage: UNK UNK, TID
     Route: 048
  8. LESCOL XL [Concomitant]
     Dosage: UNK UNK, 3 TIMES/WK
     Route: 048
  9. LETROX [Concomitant]
     Dosage: 25 MUG, QD
     Route: 048
  10. ALLOPURINOL [Concomitant]
     Dosage: UNK UNK, QD
     Route: 048
  11. LOCREN [Concomitant]
     Dosage: 10 MG, QD
     Route: 048

REACTIONS (1)
  - APLASIA PURE RED CELL [None]
